FAERS Safety Report 6855051-4 (Version None)
Quarter: 2010Q3

REPORT INFORMATION
  Report Type: 
  Country: None (occurrence: None)
  Receive Date: 20100717
  Receipt Date: 20080604
  Transmission Date: 20110219
  Serious: No
  Sender: FDA-Public Use
  Company Number: US-PFIZER INC-2007107732

PATIENT
  Sex: Female
  Weight: 70 kg

DRUGS (3)
  1. CHANTIX [Suspect]
     Indication: SMOKING CESSATION THERAPY
     Dates: start: 20071030, end: 20071123
  2. ATACAND [Concomitant]
     Indication: HYPERTENSION
  3. LIPITOR [Concomitant]
     Indication: BLOOD CHOLESTEROL INCREASED

REACTIONS (5)
  - ABNORMAL DREAMS [None]
  - DIARRHOEA [None]
  - DRUG DEPENDENCE [None]
  - SLEEP DISORDER [None]
  - STRESS [None]
